FAERS Safety Report 5466300-1 (Version None)
Quarter: 2007Q3

REPORT INFORMATION
  Report Type: 
  Country: None (occurrence: None)
  Receive Date: 20070919
  Receipt Date: 20070912
  Transmission Date: 20080115
  Serious: Yes (Hospitalization)
  Sender: FDA-Public Use
  Company Number: FABR-12174

PATIENT
  Age: 51 Year
  Sex: Male
  Weight: 74.3 kg

DRUGS (8)
  1. FABRAZYME [Suspect]
     Indication: FABRY'S DISEASE
     Dosage: 75 MG Q2WKS IV
     Route: 042
     Dates: start: 20030424
  2. FLONASE. MFR: GLAXO LABORATORIES LIMITED [Concomitant]
  3. ALTACE. MFR: HOECHST PHARMACEUTICALS, INCORPORATED [Concomitant]
  4. ASA. MFR: LILLY ELI AND COMPANY [Concomitant]
  5. FOLIC ACID [Concomitant]
  6. METOCLOPRAMIDE [Concomitant]
  7. NEURONTIN. MFR: PARKE, DAVIS AND COMPANY [Concomitant]
  8. SYNTHROID. MFR: FLINT LABORATORIES, INCORPORATED [Concomitant]

REACTIONS (1)
  - ATRIAL FIBRILLATION [None]
